FAERS Safety Report 10909105 (Version 1)
Quarter: 2015Q1

REPORT INFORMATION
  Report Type: Spontaneous
  Country: US (occurrence: US)
  Receive Date: 20150312
  Receipt Date: 20150312
  Transmission Date: 20150721
  Serious: No
  Sender: FDA-Public Use
  Company Number: US-SA-2014SA034805

PATIENT
  Age: 84 Year
  Sex: Female

DRUGS (7)
  1. NASACORT ALLERGY 24HR [Suspect]
     Active Substance: TRIAMCINOLONE ACETONIDE
     Indication: RHINORRHOEA
     Dosage: DAILY DOSE: 1 SPRAY IN EACH NOSTRIL
     Route: 065
  2. LORATADINE. [Concomitant]
     Active Substance: LORATADINE
     Route: 065
  3. ASPIRIN. [Concomitant]
     Active Substance: ASPIRIN
     Route: 065
  4. LISINOPRIL. [Concomitant]
     Active Substance: LISINOPRIL
     Route: 065
  5. SIMVASTATIN. [Concomitant]
     Active Substance: SIMVASTATIN
     Route: 065
  6. NASACORT ALLERGY 24HR [Suspect]
     Active Substance: TRIAMCINOLONE ACETONIDE
     Indication: RHINORRHOEA
     Dosage: DAILY DOSE: 2 SPRAY IN EACH NOSTRIL
     Route: 065
  7. CARVEDILOL. [Concomitant]
     Active Substance: CARVEDILOL
     Route: 065

REACTIONS (3)
  - Rhinorrhoea [Not Recovered/Not Resolved]
  - Adverse reaction [Not Recovered/Not Resolved]
  - Therapeutic response decreased [Unknown]
